FAERS Safety Report 12670859 (Version 1)
Quarter: 2016Q3

REPORT INFORMATION
  Report Type: Spontaneous
  Country: US (occurrence: US)
  Receive Date: 20160822
  Receipt Date: 20160822
  Transmission Date: 20161109
  Serious: No
  Sender: FDA-Public Use
  Company Number: US-JAZZ-2016-US-006250

PATIENT
  Sex: Female

DRUGS (25)
  1. XYREM [Suspect]
     Active Substance: SODIUM OXYBATE
     Dosage: DOSE ADJUSTMENTS
     Route: 048
     Dates: start: 201410, end: 201502
  2. HYDROCHLOROTHIAZIDE. [Concomitant]
     Active Substance: HYDROCHLOROTHIAZIDE
  3. MULTIVITAMINS [Concomitant]
     Active Substance: VITAMINS
  4. ASPIRIN. [Concomitant]
     Active Substance: ASPIRIN
  5. CLONAZEPAM. [Concomitant]
     Active Substance: CLONAZEPAM
  6. XYREM [Suspect]
     Active Substance: SODIUM OXYBATE
     Indication: NARCOLEPSY
     Dosage: 2.25 G, BID
     Route: 048
     Dates: start: 201409, end: 201410
  7. GLUCOSAMINE [Concomitant]
     Active Substance: GLUCOSAMINE
  8. LOSARTAN. [Concomitant]
     Active Substance: LOSARTAN
  9. SPIRIVA [Concomitant]
     Active Substance: TIOTROPIUM BROMIDE MONOHYDRATE
  10. VYVANSE [Concomitant]
     Active Substance: LISDEXAMFETAMINE DIMESYLATE
  11. DEXILANT [Concomitant]
     Active Substance: DEXLANSOPRAZOLE
  12. METFORMIN HCL [Concomitant]
     Active Substance: METFORMIN HYDROCHLORIDE
  13. SIMVASTATIN. [Concomitant]
     Active Substance: SIMVASTATIN
  14. PROBIOTIC [Concomitant]
     Active Substance: PROBIOTICS NOS
  15. FAMOTIDINE. [Concomitant]
     Active Substance: FAMOTIDINE
  16. FLUOXETINE HCL [Concomitant]
     Active Substance: FLUOXETINE HYDROCHLORIDE
  17. LANTUS [Concomitant]
     Active Substance: INSULIN GLARGINE
  18. METHYLPHENIDATE. [Concomitant]
     Active Substance: METHYLPHENIDATE
  19. WELLBUTRIN [Concomitant]
     Active Substance: BUPROPION HYDROCHLORIDE
  20. XYREM [Suspect]
     Active Substance: SODIUM OXYBATE
     Dosage: 3 G, BID
     Route: 048
     Dates: start: 201502
  21. ADVAIR HFA [Concomitant]
     Active Substance: FLUTICASONE PROPIONATE\SALMETEROL XINAFOATE
  22. VITAMIN B COMPLEX [Concomitant]
     Active Substance: CYANOCOBALAMIN\DEXPANTHENOL\NIACINAMIDE\PYRIDOXINE HYDROCHLORIDE\RIBOFLAVIN 5^-PHOSPHATE SODIUM\THIAMINE HYDROCHLORIDE\VITAMIN B COMPLEX
  23. CALCIUM 600+D [Concomitant]
     Active Substance: CALCIUM\VITAMIN D
  24. FISH OIL [Concomitant]
     Active Substance: FISH OIL
  25. NOVOLIN R [Concomitant]
     Active Substance: INSULIN HUMAN

REACTIONS (2)
  - Fall [Recovered/Resolved]
  - Tooth fracture [Unknown]
